FAERS Safety Report 6734326-3 (Version None)
Quarter: 2010Q2

REPORT INFORMATION
  Report Type: 
  Country: None (occurrence: None)
  Receive Date: 20100520
  Receipt Date: 20100517
  Transmission Date: 20101027
  Serious: Yes (Death, Hospitalization)
  Sender: FDA-Public Use
  Company Number: IT-ELI_LILLY_AND_COMPANY-IT201005004477

PATIENT
  Sex: Female

DRUGS (5)
  1. ALIMTA [Suspect]
     Indication: PLEURAL MESOTHELIOMA
     Dosage: 500 MG / TOTAL, UNK
     Route: 065
     Dates: start: 20100430, end: 20100430
  2. CISPLATIN [Concomitant]
     Indication: PLEURAL MESOTHELIOMA
     Dosage: 50 MG, UNKNOWN
     Route: 065
     Dates: start: 20100430, end: 20100430
  3. FOLIC ACID [Concomitant]
     Dosage: UNK, DAILY (1/D)
     Route: 065
  4. DOBETIN [Concomitant]
     Dosage: UNK, UNKNOWN
     Route: 065
     Dates: start: 20100401
  5. DEXAMETHASONE [Concomitant]
     Dosage: UNK, UNKNOWN
     Route: 065
     Dates: start: 20100429, end: 20100501

REACTIONS (2)
  - BONE MARROW FAILURE [None]
  - LEUKOPENIA [None]
